FAERS Safety Report 7743053-5 (Version None)
Quarter: 2011Q3

REPORT INFORMATION
  Report Type: 
  Country: None (occurrence: None)
  Receive Date: 20110908
  Receipt Date: 20110908
  Transmission Date: 20111222
  Serious: Yes (Life-Threatening, Hospitalization)
  Sender: FDA-Public Use
  Company Number: None

PATIENT
  Sex: Female
  Weight: 78.9259 kg

DRUGS (2)
  1. LOSARTAN POTASSIUM [Suspect]
     Indication: HYPERTENSION
     Dosage: 1 TABLET DAILY MOUTH
     Route: 048
     Dates: start: 20110613, end: 20110729
  2. ATENOLOL [Suspect]
     Indication: HYPERTENSION
     Dosage: 1 TABLET 2X DAILY MOUTH
     Route: 048
     Dates: start: 20110201, end: 20110804

REACTIONS (7)
  - FATIGUE [None]
  - INSOMNIA [None]
  - HEART RATE IRREGULAR [None]
  - EXERCISE TOLERANCE DECREASED [None]
  - SYNCOPE [None]
  - CHEST DISCOMFORT [None]
  - DIZZINESS [None]
